FAERS Safety Report 9359964 (Version 1)
Quarter: 2013Q2

REPORT INFORMATION
  Report Type: Spontaneous
  Country: TR (occurrence: TR)
  Receive Date: 20130621
  Receipt Date: 20130621
  Transmission Date: 20140414
  Serious: Yes (Other)
  Sender: FDA-Public Use
  Company Number: TR-BAYER-2013-072034

PATIENT
  Age: 36 Year
  Sex: Male
  Weight: 74 kg

DRUGS (2)
  1. BETAFERON [Suspect]
     Indication: MULTIPLE SCLEROSIS
     Dosage: UNK
     Dates: start: 2010
  2. BETAJECT COMFORT [Suspect]
     Dosage: UNK
     Dates: start: 2013

REACTIONS (6)
  - Injection site oedema [Recovering/Resolving]
  - Injection site erythema [Recovering/Resolving]
  - Mobility decreased [Recovering/Resolving]
  - Abasia [Recovering/Resolving]
  - Procedural pain [Recovering/Resolving]
  - Procedural site reaction [None]
